FAERS Safety Report 24289614 (Version 2)
Quarter: 2024Q3

REPORT INFORMATION
  Report Type: Spontaneous
  Country: CA (occurrence: None)
  Receive Date: 20240906
  Receipt Date: 20240930
  Transmission Date: 20241017
  Serious: Yes (Death, Life-Threatening, Other)
  Sender: ORION
  Company Number: CA-MLMSERVICE-20240827-PI174862-00218-1

PATIENT
  Age: 92 Year
  Sex: Female

DRUGS (4)
  1. METHOTREXATE [Suspect]
     Active Substance: METHOTREXATE
     Indication: Polymyalgia rheumatica
     Dates: start: 20230629, end: 20230913
  2. METHOTREXATE [Suspect]
     Active Substance: METHOTREXATE
     Indication: Chondrocalcinosis
  3. PREDNISONE [Concomitant]
     Active Substance: PREDNISONE
     Indication: Polymyalgia rheumatica
  4. PREDNISONE [Concomitant]
     Active Substance: PREDNISONE
     Indication: Chondrocalcinosis

REACTIONS (2)
  - Toxicity to various agents [Fatal]
  - Product use in unapproved indication [Unknown]
